FAERS Safety Report 13981598 (Version 1)
Quarter: 2017Q3

REPORT INFORMATION
  Report Type: Spontaneous
  Country: US (occurrence: US)
  Receive Date: 20170918
  Receipt Date: 20170918
  Transmission Date: 20171128
  Serious: Yes (Hospitalization)
  Sender: FDA-Public Use
  Company Number: US-FRESENIUS MEDICAL CARE RENAL THERAPIES GROUP-FMC-1709-001063

PATIENT
  Age: 76 Year
  Sex: Female

DRUGS (21)
  1. ATORVASTATIN [Concomitant]
     Active Substance: ATORVASTATIN
  2. CALCIUM ACETATE. [Concomitant]
     Active Substance: CALCIUM ACETATE
  3. HUMALOG [Concomitant]
     Active Substance: INSULIN LISPRO
  4. LEVOTHYROXINE. [Concomitant]
     Active Substance: LEVOTHYROXINE
  5. ROCALTROL [Concomitant]
     Active Substance: CALCITRIOL
  6. INSULIN GLARGINE [Concomitant]
     Active Substance: INSULIN GLARGINE
  7. CITALOPRAM [Concomitant]
     Active Substance: CITALOPRAM HYDROBROMIDE
  8. LANTUS [Concomitant]
     Active Substance: INSULIN GLARGINE
  9. FUROSEMIDE. [Concomitant]
     Active Substance: FUROSEMIDE
  10. VELPHORO [Concomitant]
     Active Substance: FERRIC OXYHYDROXIDE
  11. INSULIN ASPART [Concomitant]
     Active Substance: INSULIN ASPART
  12. DELFLEX WITH DEXTROSE 2.5% LOW MAGNESIUM LOW CALCIUM [Suspect]
     Active Substance: CALCIUM CHLORIDE\DEXTROSE\MAGNESIUM CHLORIDE\SODIUM CHLORIDE\SODIUM LACTATE
     Indication: END STAGE RENAL DISEASE
     Route: 033
     Dates: start: 20140626
  13. DOCUSATE SODIUM. [Concomitant]
     Active Substance: DOCUSATE SODIUM
  14. GENTAMICIN. [Concomitant]
     Active Substance: GENTAMICIN
  15. METOPROLOL SUCCINATE. [Concomitant]
     Active Substance: METOPROLOL SUCCINATE
  16. ONDANSETRON [Concomitant]
     Active Substance: ONDANSETRON
  17. CLINDAMYCIN. [Concomitant]
     Active Substance: CLINDAMYCIN
  18. EZETIMIBE. [Concomitant]
     Active Substance: EZETIMIBE
  19. WARFARIN [Concomitant]
     Active Substance: WARFARIN
  20. DIPHENHYDRAMINE. [Concomitant]
     Active Substance: DIPHENHYDRAMINE
  21. ZETIA [Concomitant]
     Active Substance: EZETIMIBE

REACTIONS (1)
  - Myoclonus [Recovering/Resolving]

NARRATIVE: CASE EVENT DATE: 20170822
